FAERS Safety Report 10110013 (Version 1)
Quarter: 2014Q2

REPORT INFORMATION
  Report Type: Spontaneous
  Country: US (occurrence: None)
  Receive Date: 20140423
  Receipt Date: 20140423
  Transmission Date: 20141212
  Serious: Yes (Hospitalization)
  Sender: FDA-Public Use
  Company Number: FK201401445

PATIENT
  Age: 69 Year
  Sex: Female
  Weight: 65 kg

DRUGS (15)
  1. COLISTIMETHATE [Suspect]
     Indication: KLEBSIELLA TEST POSITIVE
     Route: 042
  2. TRIMETHOPRIM SULFAMETHOXAZOLE (BACTRIM) [Concomitant]
  3. PREDNISONE (PREDNISONE) [Concomitant]
  4. TACROLIMUS (TACROLIMUS) [Concomitant]
  5. VALGANCICLOVIR (VALGANCICLOVIR) [Concomitant]
  6. VORICONAZOLE (VORICONAZOLE) [Concomitant]
  7. WARFARIN (WARFARIN) [Concomitant]
  8. ROSUVASTATIN (ROSUVASTATIN) [Concomitant]
  9. METOPROLOL (METOPROLOL) [Concomitant]
  10. OMEGA - 3 ACID ETHYL ESTERS (FISH OIL) [Concomitant]
  11. AMLODIPINE (AMLODIPINE) [Concomitant]
  12. METFORMIN (METFORMIN) [Concomitant]
  13. TIGECYCLINE (TIGECYCLINE) [Concomitant]
  14. AMIKACIN (AMIKACIN) [Concomitant]
  15. FOSFOMYCIN (FOSFOMYCIN) [Concomitant]

REACTIONS (2)
  - Renal failure acute [None]
  - Nephropathy toxic [None]
